FAERS Safety Report 24311802 (Version 5)
Quarter: 2024Q4

REPORT INFORMATION
  Report Type: Spontaneous
  Country: CO (occurrence: CO)
  Receive Date: 20240912
  Receipt Date: 20241127
  Transmission Date: 20250115
  Serious: No
  Sender: PFIZER
  Company Number: CO-PFIZER INC-PV202400118634

PATIENT
  Age: 10 Year
  Sex: Female
  Weight: 37 kg

DRUGS (2)
  1. GENOTROPIN [Suspect]
     Active Substance: SOMATROPIN
     Indication: Short stature
     Dosage: 1.4 MG, DAILY
     Route: 058
  2. GENOTROPIN [Suspect]
     Active Substance: SOMATROPIN
     Dosage: 2 MG, 1X/DAY
     Dates: start: 2022

REACTIONS (5)
  - Device leakage [Unknown]
  - Wrong technique in device usage process [Unknown]
  - Drug dose omission by device [Unknown]
  - Expired device used [Unknown]
  - Device information output issue [Unknown]

NARRATIVE: CASE EVENT DATE: 20240701
